FAERS Safety Report 4334874-X (Version None)
Quarter: 2004Q2

REPORT INFORMATION
  Report Type: 
  Country: None (occurrence: None)
  Receive Date: 20040408
  Receipt Date: 20040331
  Transmission Date: 20050107
  Serious: Yes (Disabling, Other)
  Sender: FDA-Public Use
  Company Number: 200411108EU

PATIENT
  Age: 61 Year
  Sex: Female

DRUGS (7)
  1. RILUZOLE [Suspect]
     Indication: HUNTINGTON'S CHOREA
     Route: 048
     Dates: start: 20010401
  2. LAFAMME ^JENAPHARM^ [Concomitant]
     Indication: MENOPAUSAL DISORDER
     Route: 048
     Dates: start: 20011001
  3. NEBILET [Concomitant]
     Indication: HYPERTENSION
     Route: 048
     Dates: start: 19980101
  4. VITAMIN B6 [Concomitant]
     Indication: NERVOUS SYSTEM DISORDER
     Route: 048
     Dates: start: 20010630
  5. LIKUDEN M [Concomitant]
     Indication: FUNGAL INFECTION
     Route: 048
     Dates: start: 20000301
  6. AERIUS [Concomitant]
     Indication: HYPERSENSITIVITY
     Route: 048
     Dates: start: 20010910
  7. PREDNISOLONE [Concomitant]
     Indication: HYPERSENSITIVITY
     Route: 048
     Dates: start: 20030110

REACTIONS (3)
  - HYPERSENSITIVITY [None]
  - MENOPAUSAL DISORDER [None]
  - NERVOUS SYSTEM DISORDER [None]
